FAERS Safety Report 11773855 (Version 2)
Quarter: 2018Q1

REPORT INFORMATION
  Report Type: Spontaneous
  Country: US (occurrence: US)
  Receive Date: 20151124
  Receipt Date: 20180201
  Transmission Date: 20180508
  Serious: Yes (Death)
  Sender: FDA-Public Use
  Company Number: US-PURDUE PHARMA-USA-2015-0127506

PATIENT
  Sex: Female

DRUGS (8)
  1. GABAPENTIN. [Suspect]
     Active Substance: GABAPENTIN
     Indication: PRODUCT USED FOR UNKNOWN INDICATION
     Route: 065
  2. ZOLPIDEM TARTRATE. [Suspect]
     Active Substance: ZOLPIDEM TARTRATE
     Indication: PRODUCT USED FOR UNKNOWN INDICATION
     Route: 048
  3. AMPHETAMINE [Suspect]
     Active Substance: AMPHETAMINE
     Indication: WEIGHT LOSS DIET
     Route: 065
  4. ATENOLOL. [Suspect]
     Active Substance: ATENOLOL
     Indication: PRODUCT USED FOR UNKNOWN INDICATION
     Route: 065
  5. SUMATRIPTAN. [Suspect]
     Active Substance: SUMATRIPTAN
     Indication: PRODUCT USED FOR UNKNOWN INDICATION
     Route: 065
  6. OXYCODONE HCL CR TABLETS (SIMILAR TO NDA 22-272) [Suspect]
     Active Substance: OXYCODONE HYDROCHLORIDE
     Indication: PRODUCT USED FOR UNKNOWN INDICATION
     Route: 048
  7. BUTALBITAL [Suspect]
     Active Substance: BUTALBITAL
     Indication: PRODUCT USED FOR UNKNOWN INDICATION
     Route: 048
  8. ALPRAZOLAM. [Suspect]
     Active Substance: ALPRAZOLAM
     Indication: PRODUCT USED FOR UNKNOWN INDICATION
     Route: 048

REACTIONS (2)
  - Sudden cardiac death [Fatal]
  - Inappropriate schedule of drug administration [Unknown]

NARRATIVE: CASE EVENT DATE: 20150726
